FAERS Safety Report 18168387 (Version 1)
Quarter: 2020Q3

REPORT INFORMATION
  Report Type: Spontaneous
  Country: BR (occurrence: BR)
  Receive Date: 20200819
  Receipt Date: 20200819
  Transmission Date: 20201103
  Serious: Yes (Other)
  Sender: FDA-Public Use
  Company Number: NVSC2020BR226746

PATIENT
  Sex: Female

DRUGS (4)
  1. KISQALI [Suspect]
     Active Substance: RIBOCICLIB
     Indication: PRODUCT USED FOR UNKNOWN INDICATION
     Dosage: 600 MG
     Route: 065
  2. FULVESTRANTO [Suspect]
     Active Substance: FULVESTRANT
     Indication: PRODUCT USED FOR UNKNOWN INDICATION
     Dosage: UNK
     Route: 065
  3. KISQALI [Suspect]
     Active Substance: RIBOCICLIB
     Dosage: 400 MG
     Route: 065
  4. LEVOFLOXACIN. [Suspect]
     Active Substance: LEVOFLOXACIN
     Indication: PNEUMONIA
     Dosage: UNK
     Route: 065

REACTIONS (3)
  - Dermatitis exfoliative [Unknown]
  - Pneumonia [Unknown]
  - Neutropenia [Recovered/Resolved]
